FAERS Safety Report 17572965 (Version 1)
Quarter: 2020Q1

REPORT INFORMATION
  Report Type: Spontaneous
  Country: US (occurrence: US)
  Receive Date: 20200323
  Receipt Date: 20200323
  Transmission Date: 20200409
  Serious: Yes (Other)
  Sender: FDA-Public Use
  Company Number: US-BIOMARINAP-US-2020-129048

PATIENT
  Age: 35 Year
  Sex: Female

DRUGS (2)
  1. PALYNZIQ [Suspect]
     Active Substance: PEGVALIASE-PQPZ
     Indication: PHENYLKETONURIA
     Dosage: 20 MILLIGRAM, QD
     Route: 058
  2. PALYNZIQ [Suspect]
     Active Substance: PEGVALIASE-PQPZ
     Dosage: UNK
     Route: 058
     Dates: start: 20190912

REACTIONS (6)
  - Anaphylactic reaction [Unknown]
  - Throat tightness [Unknown]
  - Vomiting [Unknown]
  - Chest discomfort [Unknown]
  - Erythema [Unknown]
  - Vision blurred [Unknown]

NARRATIVE: CASE EVENT DATE: 20200305
